FAERS Safety Report 8151945-0 (Version None)
Quarter: 2012Q1

REPORT INFORMATION
  Report Type: 
  Country: None (occurrence: None)
  Receive Date: 20120221
  Receipt Date: 20120216
  Transmission Date: 20120608
  Serious: No
  Sender: FDA-Public Use
  Company Number: US-PFIZER INC-2012043741

PATIENT
  Sex: Female
  Weight: 45.4 kg

DRUGS (4)
  1. KEFLEX [Concomitant]
     Indication: INFECTION
     Dosage: 500 MG, 2X/DAY
  2. CHANTIX [Suspect]
     Dosage: 1 MG, 2X/DAY
  3. CHANTIX [Suspect]
     Indication: SMOKING CESSATION THERAPY
     Dosage: 0.5 MG,DAILY
     Dates: start: 20120201
  4. NAPROXEN [Concomitant]
     Indication: MYALGIA
     Dosage: 500 MG, 2X/DAY

REACTIONS (1)
  - HYPERPHAGIA [None]
